FAERS Safety Report 9268800 (Version 1)
Quarter: 2013Q2

REPORT INFORMATION
  Report Type: Report from Study
  Country: US (occurrence: US)
  Receive Date: 20130502
  Receipt Date: 20130502
  Transmission Date: 20140414
  Serious: Yes (Other)
  Sender: FDA-Public Use
  Company Number: US-AMGEN-USANI2013029126

PATIENT
  Age: 81 Year
  Sex: 0

DRUGS (2)
  1. DENOSUMAB [Suspect]
     Indication: PRODUCT USED FOR UNKNOWN INDICATION
  2. XGEVA [Suspect]
     Indication: PRODUCT USED FOR UNKNOWN INDICATION

REACTIONS (1)
  - Osteonecrosis of jaw [Recovering/Resolving]
